FAERS Safety Report 6794636-0 (Version None)
Quarter: 2010Q2

REPORT INFORMATION
  Report Type: 
  Country: None (occurrence: None)
  Receive Date: 20100625
  Receipt Date: 20100614
  Transmission Date: 20101027
  Serious: Yes (Death)
  Sender: FDA-Public Use
  Company Number: KR-PFIZER INC-2009250581

PATIENT
  Age: 66 Year
  Sex: Male
  Weight: 71.8 kg

DRUGS (10)
  1. VORICONAZOLE [Suspect]
     Indication: ASPERGILLOSIS
     Dosage: 250 MG, 2X/DAY
     Route: 042
     Dates: start: 20081010, end: 20081101
  2. LOPERAMIDE HYDROCHLORIDE [Concomitant]
     Route: 048
     Dates: start: 20081001, end: 20081029
  3. POTASSIUM CHLORIDE [Concomitant]
     Indication: HYPOKALAEMIA
     Dosage: UNK
     Route: 048
     Dates: start: 20080927, end: 20081019
  4. VANCOMYCIN [Concomitant]
     Indication: PNEUMONIA
     Dosage: UNK
     Route: 042
     Dates: start: 20080922, end: 20081017
  5. SEPTRIN [Concomitant]
     Indication: PNEUMONIA
     Dosage: UNK
     Route: 048
     Dates: start: 20081010, end: 20081101
  6. MEROPEN [Concomitant]
     Indication: PNEUMONIA
     Dosage: UNK
     Route: 042
     Dates: start: 20080922, end: 20081102
  7. PHENIRAMINE [Concomitant]
     Indication: ANTIALLERGIC THERAPY
     Dosage: 4 MG, 1X/DAY
     Route: 042
     Dates: start: 20080919, end: 20081101
  8. LASIX [Concomitant]
     Indication: DIURETIC THERAPY
     Dosage: 20 MG, 1X/DAY
     Route: 042
     Dates: start: 20080923, end: 20081031
  9. ALKYLOXAN [Concomitant]
     Indication: NEOPLASM MALIGNANT
     Dosage: 50 MG, 1X/DAY
     Route: 048
     Dates: start: 20081015, end: 20081015
  10. LASTET S [Concomitant]
     Indication: NEOPLASM MALIGNANT
     Dosage: 25 MG, 1X/DAY
     Route: 048
     Dates: start: 20081015, end: 20081015

REACTIONS (2)
  - PNEUMONIA [None]
  - SEPSIS [None]
